FAERS Safety Report 24032410 (Version 1)
Quarter: 2024Q3

REPORT INFORMATION
  Report Type: Spontaneous
  Country: PR (occurrence: PR)
  Receive Date: 20240701
  Receipt Date: 20240701
  Transmission Date: 20241017
  Serious: No
  Sender: ABBVIE
  Company Number: PR-ABBVIE-5817882

PATIENT
  Age: 30 Year
  Sex: Female

DRUGS (1)
  1. VRAYLAR [Suspect]
     Active Substance: CARIPRAZINE
     Indication: Bipolar II disorder
     Dosage: FORM STRENGTH 1.5 MG
     Route: 065

REACTIONS (1)
  - Off label use [Unknown]
